FAERS Safety Report 13522551 (Version 1)
Quarter: 2017Q2

REPORT INFORMATION
  Report Type: Spontaneous
  Country: US (occurrence: US)
  Receive Date: 20170504
  Receipt Date: 20170504
  Transmission Date: 20170830
  Serious: No
  Sender: FDA-Public Use
  Company Number: US-BIOGEN-2017BI00391817

PATIENT
  Sex: Female

DRUGS (1)
  1. TECFIDERA [Suspect]
     Active Substance: DIMETHYL FUMARATE
     Indication: MULTIPLE SCLEROSIS
     Route: 065
     Dates: start: 20170417

REACTIONS (7)
  - Chills [Unknown]
  - Nausea [Recovered/Resolved]
  - Headache [Unknown]
  - Muscular weakness [Unknown]
  - Erythema [Unknown]
  - Paraesthesia [Unknown]
  - Musculoskeletal disorder [Unknown]
